FAERS Safety Report 7613245-4 (Version None)
Quarter: 2011Q3

REPORT INFORMATION
  Report Type: 
  Country: None (occurrence: None)
  Receive Date: 20110708
  Receipt Date: 20110624
  Transmission Date: 20111222
  Serious: Yes (Hospitalization, Other)
  Sender: FDA-Public Use
  Company Number: 1000019565

PATIENT
  Age: 52 Year
  Sex: Female
  Weight: 90 kg

DRUGS (6)
  1. ONVREZ (INDACATEROL) (INDACATEROL) [Concomitant]
  2. BEROTEC (FENOTEROL HYDRONROMIDE) (FENOTEROL HYDROBROMIDE) [Concomitant]
  3. MIFLONIDE (BUDESONIDE) (BUDESONIDE) [Concomitant]
  4. ROFLUMILAST (ROFLUMILAST) (TABLETS) [Suspect]
     Indication: CHRONIC OBSTRUCTIVE PULMONARY DISEASE
     Dosage: 500 MCG (500 MCG, 1 IN 1 D)
     Dates: end: 20110223
  5. SPIRIVA (TIOTROPIUM BROMIDE) (TIOTROPIUM BROMIDE) [Concomitant]
  6. BERODUAL (IPRATROPIUM, FENOTEROL) (IPRATROPIUM, FENOTREOL) [Concomitant]

REACTIONS (9)
  - PAIN [None]
  - RIB FRACTURE [None]
  - DYSPNOEA [None]
  - GENERAL PHYSICAL CONDITION ABNORMAL [None]
  - ANXIETY [None]
  - DISEASE RECURRENCE [None]
  - FALL [None]
  - PNEUMONIA [None]
  - TREMOR [None]
